FAERS Safety Report 17120614 (Version 1)
Quarter: 2019Q4

REPORT INFORMATION
  Report Type: Spontaneous
  Country: SE (occurrence: SE)
  Receive Date: 20191206
  Receipt Date: 20191206
  Transmission Date: 20200122
  Serious: Yes (Hospitalization)
  Sender: FDA-Public Use
  Company Number: SE-TEVA-2019-SE-1146882

PATIENT
  Sex: Male

DRUGS (3)
  1. IMOVANE [Suspect]
     Active Substance: ZOPICLONE
     Dosage: 40 MILLIGRAM
     Route: 048
     Dates: start: 20180421, end: 20180421
  2. LERGIGAN (PROMETHAZINE HYDROCHLORIDE) [Suspect]
     Active Substance: PROMETHAZINE HYDROCHLORIDE
     Dosage: 150 MILLIGRAM
     Route: 048
     Dates: start: 20180421, end: 20180421
  3. ZOLPIDEM [Suspect]
     Active Substance: ZOLPIDEM TARTRATE
     Dosage: 200 MILLIGRAM
     Route: 048
     Dates: start: 20180421, end: 20180421

REACTIONS (2)
  - Intentional self-injury [Unknown]
  - Intentional overdose [Unknown]

NARRATIVE: CASE EVENT DATE: 20180421
